FAERS Safety Report 10360457 (Version 2)
Quarter: 2014Q3

REPORT INFORMATION
  Report Type: Spontaneous
  Country: US (occurrence: US)
  Receive Date: 20140804
  Receipt Date: 20140804
  Transmission Date: 20150326
  Serious: Yes (Other)
  Sender: FDA-Public Use
  Company Number: PHHY2014US063829

PATIENT
  Sex: Female

DRUGS (6)
  1. NAPROXEN. [Suspect]
     Active Substance: NAPROXEN
     Dosage: 500 MG, BID
     Route: 048
  2. LIORESAL [Suspect]
     Active Substance: BACLOFEN
     Indication: MUSCLE SPASTICITY
     Dosage: 1070 UG, PER DAY
     Route: 037
     Dates: start: 20140417
  3. LACTULOSE. [Suspect]
     Active Substance: LACTULOSE
     Dosage: UNK UKN, UNK
  4. ALBUTEROL SULFATE TABLETS USP [Suspect]
     Active Substance: ALBUTEROL SULFATE
     Dosage: EVERY 4 TO 6 HOURS
  5. NORCO [Suspect]
     Active Substance: ACETAMINOPHEN\HYDROCODONE BITARTRATE
     Dosage: 1 DF, Q4H
     Route: 048
  6. ATIVAN [Suspect]
     Active Substance: LORAZEPAM
     Dosage: 2 MG, Q4H
     Route: 048

REACTIONS (1)
  - Implant site infection [Unknown]
